FAERS Safety Report 16782997 (Version 1)
Quarter: 2019Q3

REPORT INFORMATION
  Report Type: Spontaneous
  Country: US (occurrence: US)
  Receive Date: 20190906
  Receipt Date: 20190906
  Transmission Date: 20191005
  Serious: No
  Sender: FDA-Public Use
  Company Number: US-TEVA-2019-US-1104251

PATIENT
  Age: 72 Year
  Sex: Female

DRUGS (1)
  1. TEVA ESTRADIOL [Suspect]
     Active Substance: ESTRADIOL
     Route: 065

REACTIONS (6)
  - Menopausal symptoms [Unknown]
  - Insomnia [Unknown]
  - Night sweats [Unknown]
  - Hot flush [Not Recovered/Not Resolved]
  - Product quality issue [Unknown]
  - Ventricular extrasystoles [Unknown]
